FAERS Safety Report 24439272 (Version 2)
Quarter: 2024Q4

REPORT INFORMATION
  Report Type: Spontaneous
  Country: AT (occurrence: AT)
  Receive Date: 20241015
  Receipt Date: 20241218
  Transmission Date: 20250114
  Serious: Yes (Other)
  Sender: NOVARTIS
  Company Number: AT-002147023-NVSC2024AT126456

PATIENT
  Age: 73 Year
  Sex: Male
  Weight: 80 kg

DRUGS (1)
  1. MAYZENT [Suspect]
     Active Substance: SIPONIMOD
     Indication: Secondary progressive multiple sclerosis
     Dosage: 2 MG
     Route: 048
     Dates: start: 2022, end: 202404

REACTIONS (3)
  - Basal cell carcinoma [Recovered/Resolved]
  - Skin reaction [Unknown]
  - Lymphopenia [Recovered/Resolved]

NARRATIVE: CASE EVENT DATE: 20240411
